FAERS Safety Report 21995120 (Version 8)
Quarter: 2024Q2

REPORT INFORMATION
  Report Type: Report from Study
  Country: AR (occurrence: AR)
  Receive Date: 20230215
  Receipt Date: 20240530
  Transmission Date: 20240716
  Serious: Yes (Hospitalization, Other)
  Sender: FDA-Public Use
  Company Number: AR-002147023-NVSC2021AR251787

PATIENT
  Age: 44 Year
  Sex: Female

DRUGS (11)
  1. TASIGNA [Suspect]
     Active Substance: NILOTINIB
     Indication: Chronic myeloid leukaemia
     Dosage: 800 MG, QD (2 OF 200 MG) (2 IN THE MORNING, 2 IN THE AFTERNOON), (8 YEARS AGO APPROXIMATELY)
     Route: 065
  2. TASIGNA [Suspect]
     Active Substance: NILOTINIB
     Dosage: 400 MG, QD (2 OF 200MG), (IN THE MORNING)
     Route: 065
  3. TASIGNA [Suspect]
     Active Substance: NILOTINIB
     Dosage: 800 MG, QD
     Route: 048
     Dates: start: 20131027
  4. TASIGNA [Suspect]
     Active Substance: NILOTINIB
     Dosage: 200 MG, QD (THROUGH THE MOUTH)
     Route: 048
  5. TASIGNA [Suspect]
     Active Substance: NILOTINIB
     Dosage: 200 MG, BID
     Route: 048
  6. TASIGNA [Suspect]
     Active Substance: NILOTINIB
     Dosage: 800 MG, QD (IN THE MORNING)
     Route: 048
     Dates: start: 202301
  7. TASIGNA [Suspect]
     Active Substance: NILOTINIB
     Dosage: UNK, QD (ONE)
     Route: 048
  8. TASIGNA [Suspect]
     Active Substance: NILOTINIB
     Dosage: 400 MG, QD (200 MG IN THE MORNING AND 200 MG AT NIGHT)
     Route: 065
  9. LEVOTHYROXINE [Concomitant]
     Active Substance: LEVOTHYROXINE\LEVOTHYROXINE SODIUM
     Indication: Product used for unknown indication
     Dosage: UNK (SHE HAS BEEN USING IT FOR 35 YEARS)
     Route: 065
  10. VENART [Concomitant]
     Indication: Product used for unknown indication
     Dosage: UNK
     Route: 065
  11. PANTUS [Concomitant]
     Indication: Gastritis
     Dosage: UNK
     Route: 065

REACTIONS (32)
  - Malaise [Unknown]
  - Pneumonia [Unknown]
  - Furuncle [Unknown]
  - Diabetes mellitus [Unknown]
  - Lung disorder [Unknown]
  - Pulmonary oedema [Unknown]
  - Anal haemorrhage [Unknown]
  - Rash [Recovered/Resolved]
  - Dengue fever [Unknown]
  - Headache [Not Recovered/Not Resolved]
  - Vomiting [Recovered/Resolved]
  - Myalgia [Not Recovered/Not Resolved]
  - Rash [Not Recovered/Not Resolved]
  - Diarrhoea [Not Recovered/Not Resolved]
  - Illness [Unknown]
  - Bronchospasm [Unknown]
  - Aphasia [Unknown]
  - Somnolence [Not Recovered/Not Resolved]
  - Abdominal discomfort [Unknown]
  - Anaemia [Unknown]
  - Tonsillar erythema [Recovering/Resolving]
  - Blood glucose increased [Unknown]
  - Bone pain [Not Recovered/Not Resolved]
  - Erythema [Not Recovered/Not Resolved]
  - Muscle spasms [Not Recovered/Not Resolved]
  - Nasopharyngitis [Unknown]
  - Anal fissure [Unknown]
  - Memory impairment [Unknown]
  - Mental disorder [Unknown]
  - Fatigue [Unknown]
  - Dry skin [Unknown]
  - Inappropriate schedule of product administration [Unknown]

NARRATIVE: CASE EVENT DATE: 20140801
